FAERS Safety Report 9644163 (Version 2)
Quarter: 2013Q4

REPORT INFORMATION
  Report Type: Spontaneous
  Country: US (occurrence: US)
  Receive Date: 20131024
  Receipt Date: 20131112
  Transmission Date: 20140711
  Serious: No
  Sender: FDA-Public Use
  Company Number: US-009507513-1310USA009368

PATIENT
  Age: 19 Year
  Sex: Female
  Weight: 113.38 kg

DRUGS (1)
  1. NEXPLANON [Suspect]
     Indication: CONTRACEPTION
     Dosage: 3 YEAR IMPLANT
     Route: 059
     Dates: start: 20130624

REACTIONS (4)
  - Dysmenorrhoea [Unknown]
  - Back pain [Unknown]
  - Menstruation delayed [Unknown]
  - Menorrhagia [Unknown]
